FAERS Safety Report 21841006 (Version 2)
Quarter: 2023Q2

REPORT INFORMATION
  Report Type: Spontaneous
  Country: US (occurrence: None)
  Receive Date: 20230110
  Receipt Date: 20230405
  Transmission Date: 20230722
  Serious: No
  Sender: FDA-Public Use
  Company Number: 2023A005156

PATIENT
  Age: 700 Month
  Sex: Female
  Weight: 55.3 kg

DRUGS (4)
  1. SYMBICORT [Suspect]
     Active Substance: BUDESONIDE\FORMOTEROL FUMARATE DIHYDRATE
     Indication: Asthma
     Dosage: 160MCG/4.5MCG SYMBICORT, 2 PUFFS TWICE DAILY
     Route: 055
     Dates: start: 20230105
  2. SYMBICORT [Suspect]
     Active Substance: BUDESONIDE\FORMOTEROL FUMARATE DIHYDRATE
     Indication: Infection
     Dosage: 160MCG/4.5MCG SYMBICORT, 2 PUFFS TWICE DAILY
     Route: 055
     Dates: start: 20230105
  3. SYMBICORT [Suspect]
     Active Substance: BUDESONIDE\FORMOTEROL FUMARATE DIHYDRATE
     Indication: Cough
     Dosage: 160MCG/4.5MCG SYMBICORT, 2 PUFFS TWICE DAILY
     Route: 055
     Dates: start: 20230105
  4. SYMBICORT [Suspect]
     Active Substance: BUDESONIDE\FORMOTEROL FUMARATE DIHYDRATE
     Indication: Drainage
     Dosage: 160MCG/4.5MCG SYMBICORT, 2 PUFFS TWICE DAILY
     Route: 055
     Dates: start: 20230105

REACTIONS (3)
  - Malaise [Not Recovered/Not Resolved]
  - Product use issue [Unknown]
  - Device malfunction [Unknown]

NARRATIVE: CASE EVENT DATE: 20230101
